FAERS Safety Report 16395145 (Version 2)
Quarter: 2019Q2

REPORT INFORMATION
  Report Type: Spontaneous
  Country: CN (occurrence: CN)
  Receive Date: 20190605
  Receipt Date: 20190624
  Transmission Date: 20190711
  Serious: Yes (Death, Life-Threatening, Hospitalization, Other)
  Sender: FDA-Public Use
  Company Number: CN-BRACCO-2019CN02713

PATIENT
  Age: 69 Year
  Sex: Male

DRUGS (5)
  1. MULTIHANCE [Suspect]
     Active Substance: GADOBENATE DIMEGLUMINE
     Indication: MAGNETIC RESONANCE CHOLANGIOPANCREATOGRAPHY
     Dosage: 3 ML, SINGLE
     Route: 048
     Dates: start: 20190527, end: 20190527
  2. NORMAL SALINE [Concomitant]
     Active Substance: SODIUM CHLORIDE
     Dosage: 20 ML
     Route: 042
     Dates: start: 20190527, end: 20190527
  3. NORMAL SALINE [Concomitant]
     Active Substance: SODIUM CHLORIDE
     Dosage: 500 ML
     Route: 048
     Dates: start: 20190527, end: 20190527
  4. ANISODAMINE HCL [Concomitant]
     Indication: MUSCLE RELAXANT THERAPY
     Dosage: UNK
     Route: 030
     Dates: start: 20190527, end: 20190527
  5. MULTIHANCE [Suspect]
     Active Substance: GADOBENATE DIMEGLUMINE
     Indication: MAGNETIC RESONANCE CHOLANGIOPANCREATOGRAPHY
     Dosage: 5.8 ML, SINGLE
     Route: 042
     Dates: start: 20190527, end: 20190527

REACTIONS (4)
  - Incorrect route of product administration [Unknown]
  - Product preparation error [Unknown]
  - Off label use [Unknown]
  - Anaphylactic shock [Unknown]

NARRATIVE: CASE EVENT DATE: 20190527
